FAERS Safety Report 4921000-9 (Version None)
Quarter: 2006Q1

REPORT INFORMATION
  Report Type: 
  Country: None (occurrence: None)
  Receive Date: 20060223
  Receipt Date: 20041115
  Transmission Date: 20060701
  Serious: Yes (Hospitalization, Other)
  Sender: FDA-Public Use
  Company Number: US-MERCK-0411USA02721

PATIENT
  Age: 62 Year
  Sex: Female
  Weight: 92 kg

DRUGS (9)
  1. VIOXX [Suspect]
     Indication: ARTHRITIS
     Route: 048
     Dates: start: 20000327, end: 20030901
  2. LASIX [Concomitant]
     Route: 065
  3. PERSANTINE [Concomitant]
     Route: 065
  4. CAPTOPRIL [Concomitant]
     Route: 065
  5. ASPIRIN [Concomitant]
     Route: 065
  6. POTASSIUM (UNSPECIFIED) [Concomitant]
     Route: 065
  7. CARDIZEM [Concomitant]
     Route: 065
  8. ZANTAC [Concomitant]
     Route: 065
  9. RELAFEN [Concomitant]
     Route: 065

REACTIONS (13)
  - ANAEMIA [None]
  - ARTHRITIS [None]
  - ARTHROPATHY [None]
  - BASAL CELL CARCINOMA [None]
  - BRONCHITIS [None]
  - BUNION [None]
  - DEPRESSION [None]
  - FOOT FRACTURE [None]
  - PEPTIC ULCER [None]
  - RESTLESS LEGS SYNDROME [None]
  - SKIN LESION [None]
  - TOE DEFORMITY [None]
  - URINARY TRACT INFECTION [None]
